FAERS Safety Report 20755101 (Version 1)
Quarter: 2022Q2

REPORT INFORMATION
  Report Type: Spontaneous
  Country: CA (occurrence: CA)
  Receive Date: 20220427
  Receipt Date: 20220427
  Transmission Date: 20220720
  Serious: Yes (Other)
  Sender: FDA-Public Use
  Company Number: CA-JNJFOC-20220445374

PATIENT
  Age: 41 Year
  Sex: Male
  Weight: 81 kg

DRUGS (7)
  1. REMICADE [Suspect]
     Active Substance: INFLIXIMAB
     Indication: Ankylosing spondylitis
     Route: 042
  2. PREGABALIN [Concomitant]
     Active Substance: PREGABALIN
     Route: 065
  3. PANTOPRAZOLE [Concomitant]
     Active Substance: PANTOPRAZOLE
  4. NAPROXEN SODIUM [Concomitant]
     Active Substance: NAPROXEN SODIUM
  5. IBUPROFEN [Concomitant]
     Active Substance: IBUPROFEN
  6. HYDROMORPHONE [Concomitant]
     Active Substance: HYDROMORPHONE
  7. CELEBREX [Concomitant]
     Active Substance: CELECOXIB

REACTIONS (9)
  - Ankylosing spondylitis [Not Recovered/Not Resolved]
  - Movement disorder [Not Recovered/Not Resolved]
  - Muscle spasms [Not Recovered/Not Resolved]
  - Weight decreased [Not Recovered/Not Resolved]
  - Pain [Not Recovered/Not Resolved]
  - Condition aggravated [Not Recovered/Not Resolved]
  - Off label use [Not Recovered/Not Resolved]
  - Inappropriate schedule of product administration [Not Recovered/Not Resolved]
  - Intentional product use issue [Not Recovered/Not Resolved]
